FAERS Safety Report 9076154 (Version 1)
Quarter: 2013Q1

REPORT INFORMATION
  Report Type: Report from Study
  Country: US (occurrence: US)
  Receive Date: 20130129
  Receipt Date: 20130129
  Transmission Date: 20140127
  Serious: No
  Sender: FDA-Public Use
  Company Number: US-ABBOTT-12P-163-0931049-00

PATIENT
  Age: 77 None
  Sex: Female

DRUGS (2)
  1. HUMIRA 40 MG/0.8 ML PEN [Suspect]
     Indication: CROHN^S DISEASE
     Dates: start: 201108
  2. COMPLETE MULTIVITAMIN [Concomitant]
     Indication: PRODUCT USED FOR UNKNOWN INDICATION

REACTIONS (10)
  - Disturbance in attention [Unknown]
  - Gingival pain [Unknown]
  - Eructation [Unknown]
  - Pruritus [Unknown]
  - Pruritus [Unknown]
  - Oropharyngeal pain [Unknown]
  - Ear pain [Unknown]
  - Rectal abscess [Unknown]
  - Hot flush [Unknown]
  - Breast mass [Unknown]
